FAERS Safety Report 7171282-0 (Version None)
Quarter: 2010Q4

REPORT INFORMATION
  Report Type: 
  Country: None (occurrence: None)
  Receive Date: 20101123
  Receipt Date: 20100727
  Transmission Date: 20110411
  Serious: No
  Sender: FDA-Public Use
  Company Number: 016360

PATIENT
  Sex: Female

DRUGS (1)
  1. CIMZIA [Suspect]
     Indication: CROHN'S DISEASE
     Dosage: SUBCUTANEOUS
     Route: 058
     Dates: start: 20090815

REACTIONS (5)
  - ABDOMINAL PAIN LOWER [None]
  - BLOOD URINE PRESENT [None]
  - DEPRESSION [None]
  - SINUSITIS [None]
  - VAGINAL INFECTION [None]
